FAERS Safety Report 16957486 (Version 1)
Quarter: 2019Q4

REPORT INFORMATION
  Report Type: Spontaneous
  Country: US (occurrence: US)
  Receive Date: 20191024
  Receipt Date: 20191024
  Transmission Date: 20200122
  Serious: Yes (Other)
  Sender: FDA-Public Use
  Company Number: US-JNJFOC-20191018964

PATIENT
  Sex: Female

DRUGS (1)
  1. XARELTO [Suspect]
     Active Substance: RIVAROXABAN
     Indication: CARDIAC FAILURE
     Route: 048

REACTIONS (5)
  - Alopecia [Unknown]
  - Off label use [Unknown]
  - Speech disorder [Unknown]
  - Product use in unapproved indication [Unknown]
  - Surgery [Unknown]
